FAERS Safety Report 15094089 (Version 1)
Quarter: 2018Q2

REPORT INFORMATION
  Report Type: Report from Study
  Country: JP (occurrence: JP)
  Receive Date: 20180630
  Receipt Date: 20180630
  Transmission Date: 20180711
  Serious: Yes (Other)
  Sender: FDA-Public Use
  Company Number: JP-AMGEN-JPNCT2018086318

PATIENT
  Age: 72 Year
  Sex: Female

DRUGS (3)
  1. BENET [Concomitant]
     Active Substance: RISEDRONATE SODIUM
     Indication: HYPERPARATHYROIDISM PRIMARY
     Dosage: 75 MG, UNK
     Route: 048
     Dates: start: 20141020
  2. CINACALCET HCL [Suspect]
     Active Substance: CINACALCET HYDROCHLORIDE
     Indication: HYPERPARATHYROIDISM PRIMARY
     Dosage: 26 MG, QD
     Route: 048
     Dates: start: 20140722
  3. MECOBALAMIN [Concomitant]
     Active Substance: METHYLCOBALAMIN
     Indication: HYPERPARATHYROIDISM PRIMARY
     Dosage: 1500 MUG, UNK
     Route: 048
     Dates: start: 20141202

REACTIONS (2)
  - Off label use [Unknown]
  - Electrocardiogram T wave inversion [Unknown]

NARRATIVE: CASE EVENT DATE: 20140722
